FAERS Safety Report 5932572-X (Version None)
Quarter: 2008Q4

REPORT INFORMATION
  Report Type: 
  Country: None (occurrence: None)
  Receive Date: 20081009
  Receipt Date: 20071015
  Transmission Date: 20090506
  Serious: Yes (Other)
  Sender: FDA-Public Use
  Company Number: PHEH2007US13715

PATIENT
  Sex: Female

DRUGS (1)
  1. ZOMETA [Suspect]
     Indication: METASTASES TO BONE
     Dosage: 4 MG EVERY 3 TO 4 WEEKS, INTRAVENOUS
     Route: 042
     Dates: start: 20030101

REACTIONS (3)
  - HYPERBARIC OXYGEN THERAPY [None]
  - OSTEONECROSIS [None]
  - TOOTH EXTRACTION [None]
